FAERS Safety Report 8543002-6 (Version None)
Quarter: 2012Q3

REPORT INFORMATION
  Report Type: 
  Country: None (occurrence: None)
  Receive Date: 20120727
  Receipt Date: 20120720
  Transmission Date: 20120928
  Serious: Yes (Other)
  Sender: FDA-Public Use
  Company Number: CA-JNJFOC-20120710688

PATIENT
  Sex: Female
  Weight: 51.3 kg

DRUGS (5)
  1. FOLIC ACID [Concomitant]
     Route: 065
  2. MELOXICAM [Concomitant]
     Route: 065
  3. ESTRACE [Concomitant]
     Route: 065
  4. METHOTREXATE [Concomitant]
     Route: 065
  5. SIMPONI [Suspect]
     Indication: PSORIATIC ARTHROPATHY
     Route: 058

REACTIONS (4)
  - PHARYNGEAL OEDEMA [None]
  - FATIGUE [None]
  - DYSPNOEA [None]
  - CHEST DISCOMFORT [None]
